FAERS Safety Report 8179699-2 (Version None)
Quarter: 2012Q1

REPORT INFORMATION
  Report Type: 
  Country: None (occurrence: None)
  Receive Date: 20120302
  Receipt Date: 20120221
  Transmission Date: 20120608
  Serious: Yes (Hospitalization, Other)
  Sender: FDA-Public Use
  Company Number: US-ELI_LILLY_AND_COMPANY-US201102003023

PATIENT
  Sex: Female

DRUGS (16)
  1. FORTEO [Suspect]
     Dosage: 20 UG, QD
     Route: 058
  2. FORTEO [Suspect]
     Indication: OSTEOPOROSIS
     Dosage: 20 UG, DAILY (1/D)
     Route: 058
     Dates: start: 20110201
  3. OXYGEN [Concomitant]
     Dates: start: 20090101
  4. AMITRIPTYLINE HCL [Concomitant]
     Dosage: 25 MG, QD
  5. KLOR-CON M20 [Concomitant]
  6. TYLENOL                                 /SCH/ [Concomitant]
     Dosage: 500 MG, OTHER
  7. FORTEO [Suspect]
     Dosage: 20 UG, QD
     Route: 058
  8. ZOLOFT [Concomitant]
     Dosage: 100 MG, QD
  9. COREG [Concomitant]
     Indication: BLOOD PRESSURE
  10. MULTI-VITAMIN [Concomitant]
  11. ANTIBIOTICS [Concomitant]
  12. MORPHINE                           /00036301/ [Concomitant]
     Dates: start: 20110207
  13. FORTEO [Suspect]
     Dosage: 20 UG, DAILY (1/D)
     Route: 058
  14. FUROSEMIDE [Concomitant]
     Dosage: 20 MG, QD
  15. PROTONIX [Concomitant]
     Dosage: 40 MG, QD
  16. VITAMIN D [Concomitant]

REACTIONS (11)
  - INTERVERTEBRAL DISC COMPRESSION [None]
  - CHRONIC OBSTRUCTIVE PULMONARY DISEASE [None]
  - MIGRAINE [None]
  - MOVEMENT DISORDER [None]
  - MUSCLE STRAIN [None]
  - SYNCOPE [None]
  - BACK PAIN [None]
  - ABDOMINAL PAIN [None]
  - MALAISE [None]
  - PAIN [None]
  - BLOOD PRESSURE DECREASED [None]
